FAERS Safety Report 18605739 (Version 1)
Quarter: 2020Q4

REPORT INFORMATION
  Report Type: Spontaneous
  Country: ES (occurrence: ES)
  Receive Date: 20201211
  Receipt Date: 20201211
  Transmission Date: 20210114
  Serious: Yes (Other)
  Sender: FDA-Public Use
  Company Number: ES-MYLANLABS-2020M1100716

PATIENT
  Age: 14 Year
  Sex: Female
  Weight: 53 kg

DRUGS (4)
  1. CLARITHROMYCIN. [Suspect]
     Active Substance: CLARITHROMYCIN
     Indication: CHRONIC GRANULOMATOUS DISEASE
     Dosage: DOSE UNIT FREQUENCY: 1000 MG-MILLIGRAMS || DOSE PERINTAKE: 500 MG-MILLIGRAMS || NUMBER OF INTAKES
     Route: 048
     Dates: start: 20160504, end: 20160506
  2. AMBISOME [Suspect]
     Active Substance: AMPHOTERICIN B
     Indication: CHRONIC GRANULOMATOUS DISEASE
     Dosage: DOSE UNIT FREQUENCY: 270 MG-MILLIGRAMS || DOSE PERINTAKE: 270 MG-MILLIGRAMS || NUMBER OF INTAKES
     Route: 042
     Dates: start: 20160504, end: 20160512
  3. COTRIMOXAZOL [Concomitant]
     Active Substance: SULFAMETHOXAZOLE\TRIMETHOPRIM
     Indication: CHRONIC GRANULOMATOUS DISEASE
     Dosage: 2 DF-DOSAGE FORMS || DOSE PERINTAKE: 1 DF-DOSAGE FORMS || NUMBER OF INTAKES PER UNIT OF
     Route: 042
     Dates: start: 20160604
  4. IMIPENEM [Suspect]
     Active Substance: IMIPENEM
     Indication: CHRONIC GRANULOMATOUS DISEASE
     Dosage: DOSAGE UNIT FREQUENCY: 3 DF-DOSAGE FORMS || DOSE PER INTAKE: 1 DF-DOSAGE FORMS || NUMBER OF
     Route: 042
     Dates: start: 20160504, end: 20160511

REACTIONS (2)
  - Hypokalaemia [Recovered/Resolved]
  - Vomiting [Recovered/Resolved]

NARRATIVE: CASE EVENT DATE: 201605
